FAERS Safety Report 9638000 (Version 1)
Quarter: 2013Q4

REPORT INFORMATION
  Report Type: Spontaneous
  Country: US (occurrence: None)
  Receive Date: 20131021
  Receipt Date: 20131021
  Transmission Date: 20140711
  Serious: Yes (Death, Other)
  Sender: FDA-Public Use
  Company Number: None

PATIENT
  Age: 80 Year
  Sex: Male
  Weight: 54.5 kg

DRUGS (1)
  1. PIPERACILLIN/TAZOBACTAM [Suspect]
     Route: 042
     Dates: start: 20130419, end: 20130419

REACTIONS (4)
  - Anaphylactic shock [None]
  - Infusion related reaction [None]
  - Unresponsive to stimuli [None]
  - Ventricular arrhythmia [None]
